FAERS Safety Report 6072708-6 (Version None)
Quarter: 2009Q1

REPORT INFORMATION
  Report Type: 
  Country: None (occurrence: None)
  Receive Date: 20090210
  Receipt Date: 20090203
  Transmission Date: 20090719
  Serious: Yes (Other)
  Sender: FDA-Public Use
  Company Number: GR-JNJCH-2009002990

PATIENT
  Sex: Female

DRUGS (1)
  1. FRESHBURST LISTERINE MOUTHWASH [Suspect]
     Indication: DENTAL DISORDER PROPHYLAXIS
     Dosage: TEXT:UNSPECIFIED BID
     Route: 048
     Dates: start: 20090101, end: 20090101

REACTIONS (2)
  - APPLICATION SITE BLEEDING [None]
  - APPLICATION SITE BURN [None]
